FAERS Safety Report 15376947 (Version 1)
Quarter: 2018Q3

REPORT INFORMATION
  Report Type: Spontaneous
  Country: ES (occurrence: ES)
  Receive Date: 20180913
  Receipt Date: 20180913
  Transmission Date: 20181010
  Serious: Yes (Other)
  Sender: FDA-Public Use
  Company Number: ES-CHEPLA-C20181208

PATIENT
  Age: 47 Year
  Sex: Female

DRUGS (2)
  1. ALCOHOL. [Interacting]
     Active Substance: ALCOHOL
     Route: 048
  2. XENICAL [Suspect]
     Active Substance: ORLISTAT
     Indication: PRODUCT USED FOR UNKNOWN INDICATION
     Dosage: DAILY ADMINISTRATION
     Dates: start: 201802

REACTIONS (2)
  - Sudden onset of sleep [Unknown]
  - Drug interaction [Unknown]
